FAERS Safety Report 13010915 (Version 4)
Quarter: 2017Q3

REPORT INFORMATION
  Report Type: Spontaneous
  Country: US (occurrence: US)
  Receive Date: 20161208
  Receipt Date: 20170920
  Transmission Date: 20171127
  Serious: Yes (Death, Hospitalization)
  Sender: FDA-Public Use
  Company Number: US-ASTRAZENECA-2016SF29609

PATIENT
  Age: 27206 Day
  Sex: Female
  Weight: 63.5 kg

DRUGS (6)
  1. CREON [Concomitant]
     Active Substance: PANCRELIPASE AMYLASE\PANCRELIPASE LIPASE\PANCRELIPASE PROTEASE
     Indication: DYSPEPSIA
     Dosage: 4 TABS 3 TIMES A DAY
     Route: 048
  2. OXYCODONE [Concomitant]
     Active Substance: OXYCODONE
  3. LEVOTHYROXINE. [Concomitant]
     Active Substance: LEVOTHYROXINE
     Indication: THYROID DISORDER
     Dosage: UNKNOWN DOSE DAILY BY MOUTH
     Route: 048
     Dates: start: 20161129
  4. MOVANTIK [Suspect]
     Active Substance: NALOXEGOL OXALATE
     Indication: CONSTIPATION
     Dosage: 25.0MG ONCE/SINGLE ADMINISTRATION
     Route: 048
     Dates: start: 20161128, end: 20161128
  5. FENTANYL. [Concomitant]
     Active Substance: FENTANYL
     Dosage: 0 EITHER MG OR MCG TO 75 MG OR MCG
  6. HYDROMORPHONE [Concomitant]
     Active Substance: HYDROMORPHONE
     Indication: PAIN
     Dosage: 0.5 MG EVERY 3 HOURS
     Route: 042
     Dates: start: 20161129

REACTIONS (5)
  - Yawning [Unknown]
  - Intestinal obstruction [Unknown]
  - Loss of consciousness [Unknown]
  - Tremor [Unknown]
  - Abdominal pain [Unknown]

NARRATIVE: CASE EVENT DATE: 20161128
